FAERS Safety Report 7351607-3 (Version None)
Quarter: 2011Q1

REPORT INFORMATION
  Report Type: 
  Country: None (occurrence: None)
  Receive Date: 20110315
  Receipt Date: 20110309
  Transmission Date: 20110831
  Serious: No
  Sender: FDA-Public Use
  Company Number: US-ROXANE LABORATORIES, INC.-2011-RO-00292RO

PATIENT
  Sex: Female

DRUGS (1)
  1. PREDNISONE [Suspect]

REACTIONS (6)
  - WEIGHT INCREASED [None]
  - OSTEOPOROSIS [None]
  - CONTUSION [None]
  - MOOD SWINGS [None]
  - LACERATION [None]
  - CONSTIPATION [None]
